FAERS Safety Report 6036760-6 (Version None)
Quarter: 2009Q1

REPORT INFORMATION
  Report Type: 
  Country: None (occurrence: None)
  Receive Date: 20090114
  Receipt Date: 20080619
  Transmission Date: 20090719
  Serious: No
  Sender: FDA-Public Use
  Company Number: US-BRISTOL-MYERS SQUIBB COMPANY-14234520

PATIENT
  Sex: Male

DRUGS (2)
  1. ERBITUX [Suspect]
     Indication: HEAD AND NECK CANCER
  2. CISPLATIN [Suspect]
     Indication: HEAD AND NECK CANCER

REACTIONS (2)
  - VERTIGO [None]
  - VOMITING PROJECTILE [None]
